FAERS Safety Report 10426936 (Version 2)
Quarter: 2014Q4

REPORT INFORMATION
  Report Type: Report from Study
  Country: DE (occurrence: DE)
  Receive Date: 20140903
  Receipt Date: 20141023
  Transmission Date: 20150528
  Serious: Yes (Hospitalization)
  Sender: FDA-Public Use
  Company Number: DE-TEVA-504655GER

PATIENT
  Age: 51 Year
  Sex: Female
  Weight: 80 kg

DRUGS (8)
  1. GEMCITABINE [Suspect]
     Active Substance: GEMCITABINE\GEMCITABINE HYDROCHLORIDE
     Indication: BREAST CANCER FEMALE
     Dosage: 1528 MG/M2; D1/8 Q3W; LAST DOSE PRIOR TO THE SAE: 15-AUG-2014
     Route: 042
     Dates: start: 20140606
  2. L-THYROXIN + JOD [Concomitant]
     Dosage: 50 MICROG LEVOTHYROXINE PLUS 100 MICROG IODIDE
  3. MTX [Concomitant]
     Active Substance: METHOTREXATE SODIUM
  4. HYDROCORTISONE. [Concomitant]
     Active Substance: HYDROCORTISONE
     Dosage: 15 MILLIGRAM DAILY; 10-5-0 MG
  5. FOLSAEURE [Concomitant]
     Active Substance: FOLIC ACID
     Dosage: 2.8571 MILLIGRAM DAILY;
  6. CALCIUM [Concomitant]
     Active Substance: CALCIUM
     Dosage: 50 MILLIGRAM DAILY; 50 MG 0-1-0
  7. MAGNESIUM [Concomitant]
     Active Substance: MAGNESIUM
     Dosage: 250 MILLIGRAM DAILY; 250 MG 0-0-1
  8. ABRAXANE [Suspect]
     Active Substance: PACLITAXEL
     Indication: BREAST CANCER FEMALE
     Dosage: 239 MG/M2; D1/8 Q3W; LAST DOSE PRIOR TO THE SAE: 15-AUG-2014
     Route: 042
     Dates: start: 20140606

REACTIONS (1)
  - Colitis ischaemic [Recovered/Resolved]

NARRATIVE: CASE EVENT DATE: 20140821
